FAERS Safety Report 5514682-4 (Version None)
Quarter: 2007Q4

REPORT INFORMATION
  Report Type: 
  Country: None (occurrence: None)
  Receive Date: 20071113
  Receipt Date: 20071017
  Transmission Date: 20080405
  Serious: Yes (Hospitalization, Other)
  Sender: FDA-Public Use
  Company Number: JP-PFIZER INC-2007088437

PATIENT
  Sex: Female
  Weight: 57 kg

DRUGS (2)
  1. HYDROCORTISONE [Suspect]
     Indication: POSTOPERATIVE CARE
     Route: 048
  2. ANTIFLATULENTS [Concomitant]

REACTIONS (5)
  - BACK PAIN [None]
  - DYSPHORIA [None]
  - FALL [None]
  - MESENTERIC ARTERY THROMBOSIS [None]
  - OVARIAN NEOPLASM [None]
